FAERS Safety Report 8276994-3 (Version None)
Quarter: 2012Q2

REPORT INFORMATION
  Report Type: 
  Country: None (occurrence: None)
  Receive Date: 20120412
  Receipt Date: 20120403
  Transmission Date: 20120825
  Serious: Yes (Other)
  Sender: FDA-Public Use
  Company Number: US-ASTRAZENECA-2012SE21899

PATIENT
  Age: 64 Year
  Sex: Male

DRUGS (1)
  1. TOPROL-XL [Suspect]
     Route: 048
     Dates: start: 20010101

REACTIONS (3)
  - OSTEOARTHRITIS [None]
  - HEPATIC ENZYME INCREASED [None]
  - BLOOD TRIGLYCERIDES INCREASED [None]
